FAERS Safety Report 13098169 (Version 1)
Quarter: 2017Q1

REPORT INFORMATION
  Report Type: Not Available
  Country: US (occurrence: US)
  Receive Date: 20170109
  Receipt Date: 20170109
  Transmission Date: 20170428
  Serious: No
  Sender: FDA-Public Use
  Company Number: US-ANIPHARMA-2016-US-010618

PATIENT
  Age: 12 Year
  Sex: Male

DRUGS (2)
  1. METOCLOPRAMIDE (NON-SPECIFIC) [Suspect]
     Active Substance: METOCLOPRAMIDE
     Route: 048
  2. VANCOMYCIN HYDROCHLORIDE (NON-SPECIFIC) [Suspect]
     Active Substance: VANCOMYCIN HYDROCHLORIDE
     Route: 048

REACTIONS (1)
  - Hypersensitivity [Unknown]
